FAERS Safety Report 6441048-5 (Version None)
Quarter: 2009Q4

REPORT INFORMATION
  Report Type: 
  Country: None (occurrence: None)
  Receive Date: 20091116
  Receipt Date: 20091106
  Transmission Date: 20100525
  Serious: Yes (Hospitalization)
  Sender: FDA-Public Use
  Company Number: FR-ROCHE-667501

PATIENT
  Age: 30 Year
  Sex: Female

DRUGS (5)
  1. PEGASYS [Suspect]
     Indication: DRUG USE FOR UNKNOWN INDICATION
     Route: 058
     Dates: start: 20090507, end: 20090824
  2. TRUVADA [Concomitant]
     Dates: start: 20080507, end: 20090811
  3. PREZISTA [Concomitant]
     Dates: end: 20090811
  4. NORVIR [Concomitant]
     Dates: start: 20090420, end: 20090811
  5. NEUPOGEN 48 [Concomitant]
     Dates: start: 20090512

REACTIONS (1)
  - CYTOLYTIC HEPATITIS [None]
